FAERS Safety Report 7769429-8 (Version None)
Quarter: 2011Q3

REPORT INFORMATION
  Report Type: 
  Country: None (occurrence: None)
  Receive Date: 20110922
  Receipt Date: 20110325
  Transmission Date: 20111222
  Serious: No
  Sender: FDA-Public Use
  Company Number: US-ASTRAZENECA-2011SE17052

PATIENT
  Age: 65 Year
  Sex: Male
  Weight: 83.9 kg

DRUGS (3)
  1. SEROQUEL [Suspect]
     Indication: INSOMNIA
     Route: 048
     Dates: start: 20091001, end: 20110318
  2. CLONAZEPAM [Concomitant]
     Indication: ANXIETY
     Dosage: PRN
     Route: 048
  3. OXYCODONE HCL [Concomitant]
     Indication: ARTHRALGIA
     Route: 048

REACTIONS (6)
  - INSOMNIA [None]
  - FEELING ABNORMAL [None]
  - SOMNOLENCE [None]
  - DRUG DOSE OMISSION [None]
  - DYSKINESIA [None]
  - OFF LABEL USE [None]
